FAERS Safety Report 11390913 (Version 2)
Quarter: 2016Q4

REPORT INFORMATION
  Report Type: Spontaneous
  Country: US (occurrence: US)
  Receive Date: 20150818
  Receipt Date: 20161102
  Transmission Date: 20170206
  Serious: Yes (Other)
  Sender: FDA-Public Use
  Company Number: US-BEH-2015053031

PATIENT
  Age: 54 Year
  Sex: Female

DRUGS (2)
  1. PRIVIGEN [Suspect]
     Active Substance: HUMAN IMMUNOGLOBULIN G
     Indication: IMMUNODEFICIENCY COMMON VARIABLE
     Dosage: OVER 2 DAYS
     Route: 065
     Dates: start: 20130801
  2. PRIVIGEN [Suspect]
     Active Substance: HUMAN IMMUNOGLOBULIN G
     Dosage: OVER 2 DAYS
     Route: 065

REACTIONS (3)
  - Device dislocation [Unknown]
  - Nephrolithiasis [Unknown]
  - Renal papillary necrosis [Unknown]

NARRATIVE: CASE EVENT DATE: 20150727
